FAERS Safety Report 10260660 (Version 5)
Quarter: 2015Q3

REPORT INFORMATION
  Report Type: Report from Study
  Country: BR (occurrence: BR)
  Receive Date: 20140626
  Receipt Date: 20150818
  Transmission Date: 20151125
  Serious: Yes (Other)
  Sender: FDA-Public Use
  Company Number: BR-BIOGENIDEC-2011BI023194

PATIENT
  Age: 61 Year
  Sex: Female

DRUGS (4)
  1. AVONEX [Suspect]
     Active Substance: INTERFERON BETA-1A
     Indication: MULTIPLE SCLEROSIS
     Route: 030
     Dates: start: 2002
  2. VITAMIN D [Concomitant]
     Active Substance: CHOLECALCIFEROL
  3. AVONEX [Suspect]
     Active Substance: INTERFERON BETA-1A
     Indication: MULTIPLE SCLEROSIS
     Route: 030
     Dates: start: 200502, end: 201412
  4. AVONEX [Suspect]
     Active Substance: INTERFERON BETA-1A
     Indication: MULTIPLE SCLEROSIS
     Route: 030
     Dates: end: 201501

REACTIONS (19)
  - Hypertension [Not Recovered/Not Resolved]
  - Osteoarthritis [Unknown]
  - Injection site extravasation [Unknown]
  - Contrast media allergy [Unknown]
  - Solvent sensitivity [Not Recovered/Not Resolved]
  - Lymphoedema [Recovered/Resolved with Sequelae]
  - Blood blister [Unknown]
  - Injection site haematoma [Recovered/Resolved]
  - Pain [Unknown]
  - Hysterectomy [Recovered/Resolved with Sequelae]
  - Injection site haemorrhage [Recovered/Resolved]
  - Joint swelling [Unknown]
  - Injection site pain [Not Recovered/Not Resolved]
  - Intervertebral disc protrusion [Unknown]
  - Hypersensitivity [Recovered/Resolved with Sequelae]
  - Memory impairment [Unknown]
  - Headache [Not Recovered/Not Resolved]
  - Vertebral osteophyte [Unknown]
  - Hypothyroidism [Not Recovered/Not Resolved]

NARRATIVE: CASE EVENT DATE: 2002
